FAERS Safety Report 8088000-4 (Version None)
Quarter: 2012Q1

REPORT INFORMATION
  Report Type: 
  Country: None (occurrence: None)
  Receive Date: 20120128
  Receipt Date: 20110606
  Transmission Date: 20120608
  Serious: No
  Sender: FDA-Public Use
  Company Number: US-ABBOTT-11P-163-0730614-00

PATIENT
  Age: 28 Year
  Sex: Female

DRUGS (1)
  1. HUMIRA [Suspect]
     Indication: CROHN'S DISEASE
     Dates: start: 20090601

REACTIONS (5)
  - SINUS HEADACHE [None]
  - PARAESTHESIA [None]
  - SINUSITIS [None]
  - DIZZINESS [None]
  - INFECTION [None]
